FAERS Safety Report 5487827-2 (Version None)
Quarter: 2007Q4

REPORT INFORMATION
  Report Type: 
  Country: None (occurrence: None)
  Receive Date: 20071001
  Receipt Date: 20070423
  Transmission Date: 20080405
  Serious: Yes (Other)
  Sender: FDA-Public Use
  Company Number: TPA2007A00860

PATIENT
  Age: 7 Decade
  Sex: Female

DRUGS (1)
  1. ACTOS [Suspect]
     Dosage: PER ORAL
     Route: 048
     Dates: start: 20020423, end: 20070413

REACTIONS (1)
  - MACULAR OEDEMA [None]
